FAERS Safety Report 23757062 (Version 2)
Quarter: 2024Q2

REPORT INFORMATION
  Report Type: Spontaneous
  Country: US (occurrence: US)
  Receive Date: 20240418
  Receipt Date: 20240619
  Transmission Date: 20240716
  Serious: No
  Sender: FDA-Public Use
  Company Number: US-PFIZER INC-PV202400051254

PATIENT
  Age: 47 Year
  Sex: Female

DRUGS (4)
  1. DOCETAXEL [Suspect]
     Active Substance: DOCETAXEL\DOCETAXEL ANHYDROUS
     Indication: Uterine cancer
     Dosage: 160 MG, CYCLIC (TOTAL OF 4 CYCLES, 10 WEEKS BETWEEN CYCLE 3 AND CYCLE 4)
     Dates: start: 20180405, end: 20180726
  2. TAXOTERE [Suspect]
     Active Substance: DOCETAXEL
     Indication: Uterine cancer
     Dosage: 160 MG, CYCLIC (TOTAL OF 4 CYCLES, 10 WEEKS BETWEEN CYCLE 3 AND CYCLE 4)
     Dates: start: 20180405, end: 20180726
  3. CARBOPLATIN [Concomitant]
     Active Substance: CARBOPLATIN
     Indication: Chemotherapy
     Dosage: UNK
  4. TAXOL [Concomitant]
     Active Substance: PACLITAXEL
     Indication: Chemotherapy
     Dosage: UNK

REACTIONS (2)
  - Lacrimation increased [Not Recovered/Not Resolved]
  - Lacrimal structure injury [Not Recovered/Not Resolved]

NARRATIVE: CASE EVENT DATE: 20180801
